FAERS Safety Report 23248982 (Version 1)
Quarter: 2023Q4

REPORT INFORMATION
  Report Type: Spontaneous
  Country: GB (occurrence: GB)
  Receive Date: 20231201
  Receipt Date: 20231201
  Transmission Date: 20240109
  Serious: Yes (Disabling)
  Sender: FDA-Public Use
  Company Number: GB-MHRA-TPP18971042C7016075YC1699979812742

PATIENT
  Age: 59 Year
  Sex: Female
  Weight: 104 kg

DRUGS (7)
  1. EZETIMIBE [Suspect]
     Active Substance: EZETIMIBE
     Indication: Product used for unknown indication
     Dosage: 10 MILLIGRAM, ONCE A DAY
     Route: 065
     Dates: start: 20230929
  2. DAPAGLIFLOZIN [Concomitant]
     Active Substance: DAPAGLIFLOZIN
     Indication: Product used for unknown indication
     Dosage: 1 DOSAGE FORM, ONCE A DAY
     Route: 065
     Dates: start: 20230920
  3. FENBID [Concomitant]
     Indication: Product used for unknown indication
     Dosage: APPLY
     Route: 065
     Dates: start: 20230328
  4. LANSOPRAZOLE [Concomitant]
     Active Substance: LANSOPRAZOLE
     Indication: Product used for unknown indication
     Dosage: TAKE ONE ONCE DAILY, AS REQUIRED WHEN USING NAP...
     Route: 065
     Dates: start: 20230131
  5. METFORMIN [Concomitant]
     Active Substance: METFORMIN HYDROCHLORIDE
     Indication: Product used for unknown indication
     Dosage: TAKE 2 WITH BREAKFAST AND 2 WITH EVENING MEAL
     Route: 065
     Dates: start: 20220920
  6. NAPROXEN [Concomitant]
     Active Substance: NAPROXEN
     Indication: Product used for unknown indication
     Dosage: TAKE ONE TWICE DAILY, AS REQUIRED FOR FLARE OF ...
     Route: 065
     Dates: start: 20230131
  7. TRULICITY [Concomitant]
     Active Substance: DULAGLUTIDE
     Indication: Product used for unknown indication
     Dosage: 1.5 MILLIGRAM, EVERY WEEK
     Route: 058
     Dates: start: 20230131

REACTIONS (5)
  - Mobility decreased [Unknown]
  - Muscle tightness [Unknown]
  - Myalgia [Unknown]
  - Pain in extremity [Unknown]
  - Weight increased [Unknown]
